FAERS Safety Report 4350949-3 (Version None)
Quarter: 2004Q2

REPORT INFORMATION
  Report Type: 
  Country: None (occurrence: None)
  Receive Date: 20040430
  Receipt Date: 20040421
  Transmission Date: 20050107
  Serious: Yes (Hospitalization)
  Sender: FDA-Public Use
  Company Number: FR-GLAXOSMITHKLINE-B0330834A

PATIENT
  Age: 36 Year
  Sex: Male

DRUGS (1)
  1. ZYBAN [Suspect]
     Indication: EX-SMOKER
     Dosage: 150MG SEE DOSAGE TEXT
     Dates: start: 20040101, end: 20040201

REACTIONS (4)
  - HEADACHE [None]
  - NAUSEA [None]
  - NYSTAGMUS [None]
  - VERTIGO [None]
